FAERS Safety Report 14845341 (Version 2)
Quarter: 2018Q2

REPORT INFORMATION
  Report Type: Spontaneous
  Country: NZ (occurrence: NZ)
  Receive Date: 20180504
  Receipt Date: 20180524
  Transmission Date: 20180711
  Serious: Yes (Death, Other)
  Sender: FDA-Public Use
  Company Number: NZ-B.I. PHARMACEUTICALS,INC./RIDGEFIELD-2018-BI-023861

PATIENT
  Age: 9 Decade
  Sex: Female

DRUGS (1)
  1. CLEXANE [Suspect]
     Active Substance: ENOXAPARIN SODIUM
     Indication: PRODUCT USED FOR UNKNOWN INDICATION
     Route: 065

REACTIONS (2)
  - Malignant melanoma [Unknown]
  - Skin neoplasm bleeding [Fatal]
